FAERS Safety Report 5888351-5 (Version None)
Quarter: 2008Q3

REPORT INFORMATION
  Report Type: 
  Country: None (occurrence: None)
  Receive Date: 20080916
  Receipt Date: 20080901
  Transmission Date: 20090109
  Serious: Yes (Other)
  Sender: FDA-Public Use
  Company Number: 2008S1015920

PATIENT
  Age: 88 Year
  Sex: Female

DRUGS (6)
  1. ALENDRONIC ACID (ALENDRONIC ACID) [Suspect]
     Indication: OSTEOPOROSIS POSTMENOPAUSAL
     Dosage: 1 DF; WEEKLY; ORAL
     Route: 048
     Dates: start: 20071010, end: 20080717
  2. AMOROLFINE [Concomitant]
  3. ASPIRIN [Concomitant]
  4. DERMOVATE [Concomitant]
  5. FUROSEMIDE [Concomitant]
  6. RAMIPRIL [Concomitant]

REACTIONS (2)
  - BLISTER [None]
  - RASH GENERALISED [None]
